FAERS Safety Report 6407458-7 (Version None)
Quarter: 2009Q4

REPORT INFORMATION
  Report Type: 
  Country: None (occurrence: None)
  Receive Date: 20091014
  Receipt Date: 20091006
  Transmission Date: 20100525
  Serious: No
  Sender: FDA-Public Use
  Company Number: 397247

PATIENT
  Age: 64 Year
  Sex: Female
  Weight: 91.3 kg

DRUGS (5)
  1. PACLITAXEL [Suspect]
     Indication: FALLOPIAN TUBE CANCER
     Dosage: 345 MG, 3 WEEK, INTRAVENOUS
     Route: 042
     Dates: start: 20090806
  2. PACLITAXEL [Suspect]
     Indication: NEOPLASM RECURRENCE
     Dosage: 345 MG, 3 WEEK, INTRAVENOUS
     Route: 042
     Dates: start: 20090806
  3. RANITIDINE [Concomitant]
  4. DEXAMETHASONE [Concomitant]
  5. (DIPHENHYDRAMINE) [Concomitant]

REACTIONS (5)
  - FLUSHING [None]
  - HEART RATE INCREASED [None]
  - INFUSION RELATED REACTION [None]
  - OXYGEN SATURATION DECREASED [None]
  - VULVOVAGINAL BURNING SENSATION [None]
